FAERS Safety Report 20893787 (Version 1)
Quarter: 2022Q2

REPORT INFORMATION
  Report Type: Spontaneous
  Country: US (occurrence: None)
  Receive Date: 20220527
  Receipt Date: 20220527
  Transmission Date: 20220721
  Serious: No
  Sender: FDA-Public Use
  Company Number: None

PATIENT
  Age: 74 Year
  Sex: Male
  Weight: 82.42 kg

DRUGS (5)
  1. TEMOZOLOMIDE [Suspect]
     Active Substance: TEMOZOLOMIDE
     Dosage: OTHER FREQUENCY : 1XD DAY1-5;?
     Route: 048
     Dates: start: 202110
  2. XARELTO [Concomitant]
     Active Substance: RIVAROXABAN
  3. ALLOPURINOL [Concomitant]
     Active Substance: ALLOPURINOL
  4. KEPPRA [Concomitant]
  5. MAGNESIUM CITRATE [Concomitant]

REACTIONS (2)
  - Asthenia [None]
  - Malaise [None]
